FAERS Safety Report 20996859 (Version 2)
Quarter: 2022Q2

REPORT INFORMATION
  Report Type: Report from Study
  Country: CN (occurrence: CN)
  Receive Date: 20220623
  Receipt Date: 20220630
  Transmission Date: 20220721
  Serious: Yes (Hospitalization, Other)
  Sender: FDA-Public Use
  Company Number: CN-BRISTOL-MYERS SQUIBB COMPANY-BMS-2020-032444

PATIENT
  Age: 78 Year
  Sex: Male
  Weight: 42 kg

DRUGS (3)
  1. NIVOLUMAB [Suspect]
     Active Substance: NIVOLUMAB
     Indication: Gastric cancer
     Route: 042
     Dates: start: 20200115, end: 20200303
  2. OXALIPLATIN [Suspect]
     Active Substance: OXALIPLATIN
     Indication: Gastric cancer
     Dosage: ON 15-JAN-2020, THE PATIENT RECEIVED OXALIPLATIN (130 MG/M2, 209 MG D1).?ON 07-FEB-2020, THE PATIENT
     Route: 065
     Dates: start: 20200115, end: 20200207
  3. CAPECITABINE [Suspect]
     Active Substance: CAPECITABINE
     Indication: Gastric cancer
     Dosage: ON 15-JAN-2020, THE PATIENT RECEIVED CAPECITABINE (1000 MG/M2/DOSE, 1.6G/DOSE, D1-14).?FROM 07-FEB-2
     Route: 065
     Dates: start: 20200115, end: 20200219

REACTIONS (3)
  - Pneumothorax [Recovered/Resolved]
  - Ileus [Recovered/Resolved]
  - Pneumonia [Recovered/Resolved]

NARRATIVE: CASE EVENT DATE: 20200416
